FAERS Safety Report 9543378 (Version 2)
Quarter: 2013Q3

REPORT INFORMATION
  Report Type: Spontaneous
  Country: US (occurrence: US)
  Receive Date: 20130923
  Receipt Date: 20130927
  Transmission Date: 20140515
  Serious: Yes (Other)
  Sender: FDA-Public Use
  Company Number: US-PFIZER INC-2013272731

PATIENT
  Age: 40 Year
  Sex: Female
  Weight: 55.33 kg

DRUGS (9)
  1. ADVIL COLD AND SINUS [Suspect]
     Dosage: UNK
  2. VENLAFAXINE HCL [Interacting]
     Indication: DEPRESSION
     Dosage: 37.5 MG, 1X/DAY
     Route: 048
     Dates: start: 20130920, end: 20130921
  3. VENLAFAXINE HCL [Interacting]
     Indication: ANXIETY
  4. TOPROL XL [Concomitant]
     Indication: MITRAL VALVE PROLAPSE
     Dosage: 25 MG, 1X/DAY
  5. SINGULAIR [Concomitant]
     Indication: ASTHMA
     Dosage: 10 MG, UNK
  6. LIPITOR [Concomitant]
     Indication: BLOOD CHOLESTEROL INCREASED
     Dosage: 40 MG, UNK
  7. PRILOSEC [Concomitant]
     Dosage: UNK
  8. LOESTRIN [Concomitant]
     Indication: CONTRACEPTION
     Dosage: UNK
  9. HYDROCHLOROTHIAZIDE [Concomitant]
     Indication: DIURETIC THERAPY
     Dosage: 25 MG, 1X/DAY

REACTIONS (10)
  - Drug interaction [Unknown]
  - Vision blurred [Not Recovered/Not Resolved]
  - Eye swelling [Not Recovered/Not Resolved]
  - Mydriasis [Not Recovered/Not Resolved]
  - Disorientation [Not Recovered/Not Resolved]
  - Restlessness [Not Recovered/Not Resolved]
  - Feeling jittery [Not Recovered/Not Resolved]
  - Nausea [Not Recovered/Not Resolved]
  - Poor quality sleep [Not Recovered/Not Resolved]
  - Dizziness [Not Recovered/Not Resolved]
